FAERS Safety Report 6040505-3 (Version None)
Quarter: 2009Q1

REPORT INFORMATION
  Report Type: 
  Country: None (occurrence: None)
  Receive Date: 20090116
  Receipt Date: 20080326
  Transmission Date: 20090719
  Serious: No
  Sender: FDA-Public Use
  Company Number: US-BRISTOL-MYERS SQUIBB COMPANY-14126809

PATIENT
  Age: 46 Year
  Sex: Female
  Weight: 63 kg

DRUGS (4)
  1. ABILIFY [Suspect]
     Dates: start: 20080301
  2. XANAX [Concomitant]
  3. XOPENEX [Concomitant]
  4. HORMONE THERAPY [Concomitant]
     Indication: HORMONE REPLACEMENT THERAPY

REACTIONS (4)
  - DRY MOUTH [None]
  - FLUSHING [None]
  - NIGHT SWEATS [None]
  - THIRST [None]
